FAERS Safety Report 25192247 (Version 1)
Quarter: 2025Q2

REPORT INFORMATION
  Report Type: Report from Study
  Country: FR (occurrence: FR)
  Receive Date: 20250414
  Receipt Date: 20250414
  Transmission Date: 20250717
  Serious: Yes (Death, Life-Threatening, Hospitalization)
  Sender: MYLAN
  Company Number: FR-BAYER-2024A183608

PATIENT
  Age: 60 Year
  Sex: Male

DRUGS (3)
  1. SORAFENIB [Suspect]
     Active Substance: SORAFENIB
     Indication: Product used for unknown indication
     Dates: start: 20240926, end: 20241023
  2. REGORAFENIB [Suspect]
     Active Substance: REGORAFENIB
     Indication: Hepatocellular carcinoma
     Dosage: 160 MILLIGRAM, QD
     Dates: start: 20240926, end: 20241023
  3. REGORAFENIB [Suspect]
     Active Substance: REGORAFENIB
     Dosage: 120 MILLIGRAM, QD
     Dates: start: 20241024

REACTIONS (1)
  - Pneumonia pneumococcal [Fatal]

NARRATIVE: CASE EVENT DATE: 20241211
